FAERS Safety Report 6197390-9 (Version None)
Quarter: 2009Q2

REPORT INFORMATION
  Report Type: 
  Country: None (occurrence: None)
  Receive Date: 20090521
  Receipt Date: 20090513
  Transmission Date: 20091009
  Serious: Yes (Other)
  Sender: FDA-Public Use
  Company Number: PHHY2008BR24512

PATIENT
  Sex: Male

DRUGS (7)
  1. CARBAMAZEPINE [Suspect]
     Dosage: 400 MG, ONE IN THE AM, TWO IN PM
     Route: 048
  2. CARBAMAZEPINE [Suspect]
     Dosage: 5 TABLET/DAY
     Route: 048
  3. CARBAMAZEPINE [Suspect]
     Dosage: 4 TABLET/DAY
     Route: 048
  4. CARBAMAZEPINE [Suspect]
     Dosage: 3 TABLET/DAY
     Route: 048
  5. TEGRETOL [Suspect]
     Dosage: UNK
     Route: 048
     Dates: start: 20020101
  6. SIMVASTATIN [Concomitant]
     Dosage: UNK
  7. HYDERGINE [Concomitant]
     Dosage: 1 MG, UNK

REACTIONS (9)
  - BLADDER CATHETERISATION [None]
  - HEAD DISCOMFORT [None]
  - METASTASES TO BONE [None]
  - MUSCULOSKELETAL DISCOMFORT [None]
  - NECK PAIN [None]
  - PHYSIOTHERAPY [None]
  - URETHRAL DILATION PROCEDURE [None]
  - URETHRAL STENOSIS [None]
  - VISUAL IMPAIRMENT [None]
